FAERS Safety Report 4928098-2 (Version None)
Quarter: 2006Q1

REPORT INFORMATION
  Report Type: 
  Country: None (occurrence: None)
  Receive Date: 20060223
  Receipt Date: 20060207
  Transmission Date: 20060701
  Serious: Yes (Hospitalization, Other)
  Sender: FDA-Public Use
  Company Number: 2005BI009385

PATIENT
  Sex: Female
  Weight: 42 kg

DRUGS (4)
  1. AVONEX [Suspect]
     Indication: MULTIPLE SCLEROSIS
     Dosage: 30 UG;QW;IM
     Route: 030
     Dates: start: 20000208, end: 20050209
  2. CLOBAZAN [Concomitant]
  3. SERTRALINE [Concomitant]
  4. ESTRADIOL [Concomitant]

REACTIONS (3)
  - APHASIA [None]
  - BRAIN MASS [None]
  - FACIAL PARESIS [None]
